FAERS Safety Report 7293941-1 (Version None)
Quarter: 2011Q1

REPORT INFORMATION
  Report Type: 
  Country: None (occurrence: None)
  Receive Date: 20110203
  Receipt Date: 20110118
  Transmission Date: 20110831
  Serious: Yes (Hospitalization, Other)
  Sender: FDA-Public Use
  Company Number: ACO_21356_2011

PATIENT
  Age: 63 Year
  Sex: Female
  Weight: 78 kg

DRUGS (13)
  1. ASPIRIN [Concomitant]
  2. CLONIDINE [Concomitant]
  3. CENTRUM SILVER /01292501/ (ASCORBIC ACID, CALCIUM, MINERALS NOS, RETIN [Concomitant]
  4. AMPYRA [Suspect]
     Indication: GAIT DISTURBANCE
     Dosage: 10 MG, Q 12 HRS, ORAL
     Route: 048
     Dates: start: 20100601, end: 20101219
  5. REBIF [Concomitant]
  6. VITAMIN  NOS (VITAMIN B NOS) [Concomitant]
  7. METOPROLOL [Concomitant]
  8. LEVOXYL [Concomitant]
  9. KLOR-CON [Concomitant]
  10. PAROXETINE HCL [Concomitant]
  11. FOSINOPRIL SODIUM [Concomitant]
  12. CALCIUM (CALCIUM) [Concomitant]
  13. SIMVASTATIN [Concomitant]

REACTIONS (9)
  - THINKING ABNORMAL [None]
  - SPEECH DISORDER [None]
  - OROPHARYNGEAL PAIN [None]
  - CORONARY ARTERY OCCLUSION [None]
  - DIZZINESS [None]
  - BALANCE DISORDER [None]
  - FALL [None]
  - ASTHENIA [None]
  - DYSPNOEA [None]
